FAERS Safety Report 4976960-7 (Version None)
Quarter: 2006Q2

REPORT INFORMATION
  Report Type: 
  Country: None (occurrence: None)
  Receive Date: 20060413
  Receipt Date: 20050715
  Transmission Date: 20061013
  Serious: Yes (Other)
  Sender: FDA-Public Use
  Company Number: 2005104686

PATIENT
  Age: 58 Year
  Sex: Female

DRUGS (4)
  1. DETROL LA [Suspect]
     Indication: BLADDER DISORDER
     Dosage: 2 MG (2 MG, 1 IN 1 D), ORAL
     Route: 048
     Dates: start: 20050408, end: 20050601
  2. LEVAQUIN [Suspect]
     Indication: CELLULITIS
     Dates: start: 20050627, end: 20050701
  3. KEFLEX [Suspect]
     Indication: ILL-DEFINED DISORDER
     Dates: start: 20050401
  4. LASIX [Suspect]
     Indication: ILL-DEFINED DISORDER
     Dates: start: 20050401

REACTIONS (14)
  - ABASIA [None]
  - CARDIAC FAILURE CONGESTIVE [None]
  - CELLULITIS [None]
  - DRUG HYPERSENSITIVITY [None]
  - DRUG INEFFECTIVE [None]
  - ERYTHEMA [None]
  - INSOMNIA [None]
  - MUSCLE SPASMS [None]
  - OEDEMA PERIPHERAL [None]
  - PAIN IN EXTREMITY [None]
  - POLLAKIURIA [None]
  - SENSATION OF PRESSURE [None]
  - URTICARIA [None]
  - WEIGHT INCREASED [None]
